FAERS Safety Report 8190024-3 (Version None)
Quarter: 2012Q1

REPORT INFORMATION
  Report Type: 
  Country: None (occurrence: None)
  Receive Date: 20120307
  Receipt Date: 20120229
  Transmission Date: 20120608
  Serious: Yes (Hospitalization)
  Sender: FDA-Public Use
  Company Number: US-VIROPHARMA INCORPORATED-20120206CINRY2630

PATIENT
  Sex: Male
  Weight: 98.927 kg

DRUGS (3)
  1. DILANTIN [Concomitant]
     Indication: CONVULSION
     Route: 048
  2. CINRYZE [Suspect]
     Indication: HEREDITARY ANGIOEDEMA
     Dates: start: 20090101
  3. PRILOSEC [Concomitant]
     Indication: PRODUCT USED FOR UNKNOWN INDICATION
     Route: 048

REACTIONS (2)
  - DEVICE RELATED INFECTION [None]
  - STAPHYLOCOCCAL SEPSIS [None]
